FAERS Safety Report 22085654 (Version 1)
Quarter: 2023Q1

REPORT INFORMATION
  Report Type: Spontaneous
  Country: US (occurrence: None)
  Receive Date: 20230310
  Receipt Date: 20230310
  Transmission Date: 20230418
  Serious: Yes (Other)
  Sender: FDA-Public Use
  Company Number: None

PATIENT
  Age: 40 Year
  Sex: Male
  Weight: 103.42 kg

DRUGS (2)
  1. SUBOXONE [Suspect]
     Active Substance: BUPRENORPHINE HYDROCHLORIDE\NALOXONE HYDROCHLORIDE
     Indication: Drug dependence
     Dosage: 8-2 MG FILM ?FREQUENCY : TWICE A DAY PO?
     Route: 048
     Dates: start: 20190225
  2. BUPRENORPHINE\NALOXONE [Suspect]
     Active Substance: BUPRENORPHINE\NALOXONE
     Indication: Drug dependence
     Dosage: 8-2 MG ?FREQUENCY : TWICE A DAY?
     Route: 048
     Dates: start: 20190422

REACTIONS (5)
  - Malaise [None]
  - Drug withdrawal syndrome [None]
  - Hyperhidrosis [None]
  - Fatigue [None]
  - Irritability [None]

NARRATIVE: CASE EVENT DATE: 20190308
